FAERS Safety Report 5694944-0 (Version None)
Quarter: 2008Q2

REPORT INFORMATION
  Report Type: 
  Country: None (occurrence: None)
  Receive Date: 20080404
  Receipt Date: 20080331
  Transmission Date: 20081010
  Serious: Yes (Other)
  Sender: FDA-Public Use
  Company Number: US-ASTRAZENECA-2008UW06436

PATIENT
  Age: 79 Year
  Sex: Female

DRUGS (10)
  1. TOPROL-XL [Suspect]
     Dosage: 1/2 OF A 200MG TABLET
     Route: 048
  2. HUMULIN R [Concomitant]
     Indication: DIABETES MELLITUS
  3. LANTUS [Concomitant]
     Indication: DIABETES MELLITUS
  4. APRIDRA [Concomitant]
  5. LASIX [Concomitant]
  6. CHILDREN'S ASPIRIN [Concomitant]
  7. NORVASC [Concomitant]
  8. CRESTOR [Concomitant]
     Route: 048
  9. COUMADIN [Concomitant]
  10. COZAAR [Concomitant]

REACTIONS (8)
  - ABDOMINAL DISTENSION [None]
  - FLUSHING [None]
  - HEADACHE [None]
  - ILL-DEFINED DISORDER [None]
  - MALAISE [None]
  - MEDICATION ERROR [None]
  - NAUSEA [None]
  - THROMBOSIS [None]
